FAERS Safety Report 13620402 (Version 1)
Quarter: 2017Q2

REPORT INFORMATION
  Report Type: Spontaneous
  Country: BR (occurrence: BR)
  Receive Date: 20170607
  Receipt Date: 20170607
  Transmission Date: 20170830
  Serious: Yes (Other)
  Sender: FDA-Public Use
  Company Number: BR-ELI_LILLY_AND_COMPANY-BR201706001551

PATIENT
  Sex: Male

DRUGS (1)
  1. CYMBALTA [Suspect]
     Active Substance: DULOXETINE HYDROCHLORIDE
     Indication: FAMILIAL RISK FACTOR
     Dosage: UNK, UNKNOWN
     Route: 065

REACTIONS (11)
  - Hepatitis [Not Recovered/Not Resolved]
  - Orgasm abnormal [Unknown]
  - Erectile dysfunction [Unknown]
  - Anxiety [Not Recovered/Not Resolved]
  - Libido disorder [Unknown]
  - Gastric disorder [Not Recovered/Not Resolved]
  - Agitation [Unknown]
  - Malaise [Not Recovered/Not Resolved]
  - Nausea [Not Recovered/Not Resolved]
  - Bruxism [Unknown]
  - Flatulence [Not Recovered/Not Resolved]
